FAERS Safety Report 9336865 (Version 1)
Quarter: 2013Q2

REPORT INFORMATION
  Report Type: Spontaneous
  Country: PE (occurrence: PE)
  Receive Date: 20130607
  Receipt Date: 20130607
  Transmission Date: 20140414
  Serious: Yes (Other)
  Sender: FDA-Public Use
  Company Number: PE-PFIZER INC-2013171780

PATIENT
  Age: 76 Year
  Sex: Female

DRUGS (1)
  1. LOPID [Suspect]
     Dosage: UNK
     Route: 048
     Dates: end: 20130601

REACTIONS (2)
  - Fall [Unknown]
  - Abasia [Unknown]
